FAERS Safety Report 8925822 (Version 1)
Quarter: 2012Q4

REPORT INFORMATION
  Report Type: Report from Study
  Country: US (occurrence: US)
  Receive Date: 20121126
  Receipt Date: 20121126
  Transmission Date: 20130627
  Serious: Yes (Hospitalization)
  Sender: FDA-Public Use
  Company Number: US-009507513-1211USA008805

PATIENT
  Age: 33 Year
  Sex: Female
  Weight: 92.6 kg

DRUGS (7)
  1. TEMODAR [Suspect]
     Indication: GLIOBLASTOMA
     Dosage: 200 mg/m2, qd
     Route: 042
     Dates: start: 20090831, end: 20100315
  2. ERLOTINIB [Suspect]
     Indication: GLIOBLASTOMA
     Dosage: 150 mg, qd
     Route: 048
     Dates: start: 20090831, end: 20100406
  3. AVASTIN [Suspect]
     Indication: GLIOBLASTOMA
     Dosage: UNK
     Dates: start: 20090908
  4. LISINOPRIL [Concomitant]
     Dosage: UNK
     Dates: start: 1998
  5. HYDROCHLOROTHIAZIDE [Concomitant]
     Dosage: UNK
     Dates: start: 200907
  6. ZOFRAN [Concomitant]
     Dosage: UNK
     Dates: start: 20090831
  7. PROZAC [Concomitant]
     Dosage: UNK
     Dates: start: 20090829

REACTIONS (7)
  - Dehydration [Recovered/Resolved]
  - Pancreatitis [Unknown]
  - Back pain [Unknown]
  - Abdominal pain [Unknown]
  - Device related infection [Unknown]
  - Candidiasis [Unknown]
  - Convulsion [Unknown]
